FAERS Safety Report 7651903-6 (Version None)
Quarter: 2011Q3

REPORT INFORMATION
  Report Type: 
  Country: None (occurrence: None)
  Receive Date: 20110803
  Receipt Date: 20110727
  Transmission Date: 20111222
  Serious: Yes (Other)
  Sender: FDA-Public Use
  Company Number: US-BIOGENIDEC-2011BI019337

PATIENT
  Age: 38 Year
  Sex: Female

DRUGS (2)
  1. TYSABRI [Suspect]
     Route: 042
  2. TYSABRI [Suspect]
     Indication: MULTIPLE SCLEROSIS
     Route: 042
     Dates: start: 20110520, end: 20110610

REACTIONS (7)
  - FATIGUE [None]
  - PRURITUS [None]
  - ADVERSE DRUG REACTION [None]
  - ANAPHYLACTIC REACTION [None]
  - HEADACHE [None]
  - URTICARIA [None]
  - LYMPHADENOPATHY [None]
